FAERS Safety Report 17652509 (Version 2)
Quarter: 2020Q2

REPORT INFORMATION
  Report Type: Report from Study
  Country: US (occurrence: US)
  Receive Date: 20200409
  Receipt Date: 20200424
  Transmission Date: 20200713
  Serious: Yes (Hospitalization)
  Sender: FDA-Public Use
  Company Number: US-ACTELION-A-NJ2019-192233

PATIENT
  Age: 39 Year
  Sex: Female

DRUGS (1)
  1. OPSUMIT [Suspect]
     Active Substance: MACITENTAN
     Indication: PULMONARY ARTERIAL HYPERTENSION
     Dosage: 10 MG, QD
     Route: 048
     Dates: start: 20190508

REACTIONS (5)
  - Dyspnoea [Unknown]
  - Chest pain [Unknown]
  - Muscle spasms [Unknown]
  - Product dose omission [Unknown]
  - Emergency care [Unknown]

NARRATIVE: CASE EVENT DATE: 20190508
